FAERS Safety Report 9201800 (Version 2)
Quarter: 2013Q2

REPORT INFORMATION
  Report Type: Report from Study
  Country: US (occurrence: US)
  Receive Date: 20130401
  Receipt Date: 20130513
  Transmission Date: 20140414
  Serious: Yes (Hospitalization)
  Sender: FDA-Public Use
  Company Number: US-ABBOTT-13P-163-1049184-00

PATIENT
  Age: 27 Year
  Sex: Male

DRUGS (11)
  1. HUMIRA [Suspect]
     Indication: PSORIASIS
     Dates: start: 20121019, end: 20130218
  2. HUMIRA [Suspect]
     Indication: PSORIATIC ARTHROPATHY
  3. AMLODIPINE [Concomitant]
     Indication: PRODUCT USED FOR UNKNOWN INDICATION
  4. HCTZ [Concomitant]
     Indication: PRODUCT USED FOR UNKNOWN INDICATION
  5. LOSARTAN [Concomitant]
     Indication: PRODUCT USED FOR UNKNOWN INDICATION
  6. LISINOPRIL [Concomitant]
     Indication: PRODUCT USED FOR UNKNOWN INDICATION
  7. METFORMIN [Concomitant]
     Indication: PRODUCT USED FOR UNKNOWN INDICATION
  8. PRADAXA [Concomitant]
     Indication: PRODUCT USED FOR UNKNOWN INDICATION
  9. ATOARVASTATIN [Concomitant]
     Indication: PRODUCT USED FOR UNKNOWN INDICATION
  10. GABAPENTIN [Concomitant]
     Indication: PRODUCT USED FOR UNKNOWN INDICATION
  11. POTASSIUM [Concomitant]
     Indication: PRODUCT USED FOR UNKNOWN INDICATION

REACTIONS (11)
  - Malaise [Unknown]
  - Hypoaesthesia [Unknown]
  - Pain in jaw [Unknown]
  - Dizziness [Recovering/Resolving]
  - Abdominal pain upper [Recovering/Resolving]
  - Nausea [Recovering/Resolving]
  - Feeling hot [Recovering/Resolving]
  - Muscle enzyme increased [Unknown]
  - Erythema [Recovering/Resolving]
  - Pruritus [Recovering/Resolving]
  - Back pain [Recovering/Resolving]
